FAERS Safety Report 9272058 (Version 1)
Quarter: 2013Q2

REPORT INFORMATION
  Report Type: Report from Study
  Country: CA (occurrence: CA)
  Receive Date: 20130506
  Receipt Date: 20130506
  Transmission Date: 20140414
  Serious: Yes (Other)
  Sender: FDA-Public Use
  Company Number: CA-JNJFOC-20130417316

PATIENT
  Sex: Female
  Weight: 65.5 kg

DRUGS (6)
  1. REMICADE [Suspect]
     Indication: COLITIS ULCERATIVE
     Route: 042
     Dates: start: 20100408, end: 20130426
  2. ACETAMINOPHEN [Concomitant]
     Indication: PREMEDICATION
     Route: 048
  3. HYDROCORTISONE [Concomitant]
     Indication: PREMEDICATION
     Route: 042
  4. GRAVOL [Concomitant]
     Indication: PREMEDICATION
     Dosage: 25-50 MG
     Route: 042
  5. IMURAN [Concomitant]
     Dosage: 25-50 MG
     Route: 048
  6. BENADRYL [Concomitant]
     Indication: PREMEDICATION
     Dosage: 25-50 MG
     Route: 042

REACTIONS (1)
  - Depression [Not Recovered/Not Resolved]
